FAERS Safety Report 7723304-3 (Version None)
Quarter: 2011Q3

REPORT INFORMATION
  Report Type: 
  Country: None (occurrence: None)
  Receive Date: 20110901
  Receipt Date: 20110901
  Transmission Date: 20111222
  Serious: Yes (Other)
  Sender: FDA-Public Use
  Company Number: None

PATIENT
  Age: 28 Year
  Sex: Female
  Weight: 77.11 kg

DRUGS (1)
  1. NUVARING [Suspect]
     Indication: ENDOMETRIOSIS
     Dosage: 0.015MG
     Route: 067
     Dates: start: 20110815, end: 20110831

REACTIONS (3)
  - DEVICE BREAKAGE [None]
  - VAGINAL LACERATION [None]
  - VAGINAL HAEMORRHAGE [None]
